FAERS Safety Report 13864946 (Version 1)
Quarter: 2017Q3

REPORT INFORMATION
  Report Type: Spontaneous
  Country: US (occurrence: US)
  Receive Date: 20170814
  Receipt Date: 20170814
  Transmission Date: 20171127
  Serious: Yes (Hospitalization, Other)
  Sender: FDA-Public Use
  Company Number: US-PFIZER INC-2017219529

PATIENT
  Sex: Female

DRUGS (1)
  1. CHAPSTICK TOTAL HYDRATION [Suspect]
     Active Substance: COSMETICS
     Dosage: UNK

REACTIONS (4)
  - Road traffic accident [Unknown]
  - Lower limb fracture [Unknown]
  - Sternal fracture [Unknown]
  - Spinal fracture [Unknown]
